FAERS Safety Report 18150989 (Version 1)
Quarter: 2020Q3

REPORT INFORMATION
  Report Type: Other
  Country: US (occurrence: US)
  Receive Date: 20200814
  Receipt Date: 20200814
  Transmission Date: 20201103
  Serious: Yes (Other)
  Sender: FDA-Public Use
  Company Number: US-EDGE PHARMA LLC-2088616

PATIENT

DRUGS (1)
  1. FEATHER MIX ALLERGY STOCK VIAL MISLABELED AS DOG EPITHELIA [Suspect]
     Active Substance: ANAS PLATYRHYNCHOS FEATHER\ANSER ANSER FEATHER\GALLUS GALLUS FEATHER

REACTIONS (1)
  - Product label confusion [Recovered/Resolved]

NARRATIVE: CASE EVENT DATE: 20200722
